FAERS Safety Report 10602545 (Version 1)
Quarter: 2014Q4

REPORT INFORMATION
  Report Type: Other
  Country: US (occurrence: US)
  Receive Date: 20141124
  Receipt Date: 20141124
  Transmission Date: 20150529
  Serious: No
  Sender: FDA-Public Use
  Company Number: US-MYLANLABS-2014S1007246

PATIENT
  Age: 70 Year
  Sex: Male
  Weight: 104.33 kg

DRUGS (12)
  1. CLONAZEPAM TABLETS, USP [Suspect]
     Active Substance: CLONAZEPAM
     Indication: NOCTURIA
  2. SINEMET [Concomitant]
     Active Substance: CARBIDOPA\LEVODOPA
     Dosage: UNK
  3. CLONAZEPAM TABLETS, USP [Suspect]
     Active Substance: CLONAZEPAM
     Dosage: UNK UNK,HS
     Route: 048
     Dates: start: 20141228, end: 20140105
  4. LOSARTAN [Concomitant]
     Active Substance: LOSARTAN
     Dosage: UNK
  5. AZILECT [Concomitant]
     Active Substance: RASAGILINE MESYLATE
     Dosage: UNK
  6. CLONAZEPAM TABLETS, USP [Suspect]
     Active Substance: CLONAZEPAM
     Indication: OFF LABEL USE
  7. CLONAZEPAM TABLETS, USP [Suspect]
     Active Substance: CLONAZEPAM
     Dosage: 1 MG,HS
     Route: 048
     Dates: start: 20140106
  8. LIPITOR [Concomitant]
     Active Substance: ATORVASTATIN CALCIUM
     Dosage: UNK
  9. CLONAZEPAM TABLETS, USP [Suspect]
     Active Substance: CLONAZEPAM
     Indication: NOCTURIA
  10. CLONAZEPAM TABLETS, USP [Suspect]
     Active Substance: CLONAZEPAM
     Indication: OFF LABEL USE
  11. URSODIOL. [Concomitant]
     Active Substance: URSODIOL
     Dosage: UNK
  12. AMLODIPINE [Concomitant]
     Active Substance: AMLODIPINE BESYLATE
     Dosage: UNK

REACTIONS (1)
  - Hangover [Not Recovered/Not Resolved]

NARRATIVE: CASE EVENT DATE: 20141228
